FAERS Safety Report 19468578 (Version 6)
Quarter: 2023Q4

REPORT INFORMATION
  Report Type: Other
  Country: CZ (occurrence: None)
  Receive Date: 20210628
  Receipt Date: 20231113
  Transmission Date: 20240109
  Serious: Yes (Death, Other)
  Sender: FDA-Public Use
  Company Number: CZ-ROCHE-2855085

PATIENT

DRUGS (7)
  1. RITUXIMAB [Suspect]
     Active Substance: RITUXIMAB
     Indication: Diffuse large B-cell lymphoma
     Route: 042
  2. CYCLOPHOSPHAMIDE [Suspect]
     Active Substance: CYCLOPHOSPHAMIDE
     Indication: Diffuse large B-cell lymphoma
     Route: 042
  3. DOXORUBICIN [Suspect]
     Active Substance: DOXORUBICIN
     Indication: Diffuse large B-cell lymphoma
     Route: 042
  4. PREDNISONE [Suspect]
     Active Substance: PREDNISONE
     Indication: Diffuse large B-cell lymphoma
     Route: 048
  5. VINCRISTINE [Suspect]
     Active Substance: VINCRISTINE
     Indication: Diffuse large B-cell lymphoma
     Route: 042
  6. TAFASITAMAB-CXIX [Suspect]
     Active Substance: TAFASITAMAB-CXIX
     Indication: Diffuse large B-cell lymphoma
     Dosage: DAY 1, 8, AND 15 OF EACH 21-DAY CYCLE
     Route: 042
  7. LENALIDOMIDE [Suspect]
     Active Substance: LENALIDOMIDE
     Indication: Diffuse large B-cell lymphoma
     Dosage: DAY 1 - 10 SIX 21 DAYS CYCLES
     Route: 048

REACTIONS (41)
  - Sepsis [Fatal]
  - Urosepsis [Fatal]
  - COVID-19 pneumonia [Fatal]
  - Pneumocystis jirovecii pneumonia [Unknown]
  - Febrile neutropenia [Unknown]
  - Infection [Unknown]
  - Infestation [Unknown]
  - Neutropenia [Unknown]
  - Anaemia [Unknown]
  - Thrombocytopenia [Unknown]
  - Leukopenia [Unknown]
  - Lymphopenia [Unknown]
  - Diarrhoea [Unknown]
  - Hypokalaemia [Unknown]
  - Neuropathy peripheral [Unknown]
  - Vomiting [Unknown]
  - Constipation [Unknown]
  - Asthenia [Unknown]
  - Fatigue [Unknown]
  - Stomatitis [Unknown]
  - Hypotension [Unknown]
  - Infusion related reaction [Unknown]
  - Abdominal pain [Unknown]
  - Nausea [Unknown]
  - Insomnia [Unknown]
  - Muscle spasms [Unknown]
  - Oropharyngeal pain [Unknown]
  - Pain in extremity [Unknown]
  - Weight decreased [Unknown]
  - Alopecia [Unknown]
  - Arthralgia [Unknown]
  - Back pain [Unknown]
  - Dysgeusia [Unknown]
  - Headache [Unknown]
  - Hypomagnesaemia [Unknown]
  - Oedema peripheral [Unknown]
  - Pyrexia [Unknown]
  - Rash [Unknown]
  - Dyspnoea [Unknown]
  - Peripheral sensory neuropathy [Unknown]
  - Myalgia [Unknown]
